FAERS Safety Report 9648903 (Version 2)
Quarter: 2013Q4

REPORT INFORMATION
  Report Type: Spontaneous
  Country: GB (occurrence: GB)
  Receive Date: 20131028
  Receipt Date: 20131028
  Transmission Date: 20140711
  Serious: Yes (Life-Threatening, Other)
  Sender: FDA-Public Use
  Company Number: GB-TEVA-164275ISR

PATIENT
  Age: 19 Year
  Sex: Female

DRUGS (14)
  1. ALLOPURINOL [Suspect]
     Route: 048
  2. ONDANSETRON [Suspect]
     Dosage: 24 MILLIGRAM DAILY;
     Route: 042
  3. ACICLOVIR [Suspect]
  4. OMEPRAZOLE [Suspect]
  5. CASPOFUNGIN [Suspect]
     Dosage: 70 MILLIGRAM DAILY;
     Route: 042
  6. CHLORPHENAMINE [Suspect]
     Dosage: 40 MILLIGRAM DAILY;
     Route: 042
  7. CICLOSPORIN [Suspect]
  8. KETAMINE HYDROCHLORIDE [Suspect]
     Indication: PAIN
     Route: 042
     Dates: start: 20070921, end: 20070928
  9. MORPHINE [Suspect]
     Route: 042
  10. NORETHISTERONE [Suspect]
     Dosage: 45 MILLIGRAM DAILY;
     Route: 048
  11. PARACETAMOL [Suspect]
     Route: 042
  12. PIP/TAZO [Suspect]
     Dosage: 13.5 MILLIGRAM DAILY;
     Route: 042
  13. VORICONAZOLE [Suspect]
     Dosage: 400 MILLIGRAM DAILY;
     Route: 048
  14. ETOPOSIDE PHOSPHATE [Suspect]
     Route: 042
     Dates: start: 20070915, end: 20070915

REACTIONS (4)
  - Dilatation intrahepatic duct acquired [Unknown]
  - Hepatotoxicity [Unknown]
  - Liver function test abnormal [Unknown]
  - Venoocclusive liver disease [Unknown]
